FAERS Safety Report 5315757-5 (Version None)
Quarter: 2007Q2

REPORT INFORMATION
  Report Type: 
  Country: None (occurrence: None)
  Receive Date: 20070503
  Receipt Date: 20070424
  Transmission Date: 20071010
  Serious: Yes (Hospitalization)
  Sender: FDA-Public Use
  Company Number: HQWYE801624APR07

PATIENT
  Age: 58 Year
  Sex: Female

DRUGS (3)
  1. AVLOCARDYL [Suspect]
     Dosage: 2 G ONCE
     Route: 048
     Dates: start: 20070212
  2. EFFEXOR [Concomitant]
     Dosage: 75 MG TABLET, FREQUENCY UNSPECIFIED
     Route: 048
  3. SERESTA [Concomitant]
     Dosage: UNKNOWN
     Route: 048

REACTIONS (3)
  - COMA [None]
  - HEPATIC ENZYME INCREASED [None]
  - INTENTIONAL OVERDOSE [None]
